FAERS Safety Report 22073376 (Version 1)
Quarter: 2023Q1

REPORT INFORMATION
  Report Type: Spontaneous
  Country: US (occurrence: US)
  Receive Date: 20230308
  Receipt Date: 20230308
  Transmission Date: 20230417
  Serious: Yes (Other)
  Sender: FDA-Public Use
  Company Number: US-ORGANON-O2303USA000366

PATIENT
  Age: 61 Year
  Sex: Female

DRUGS (6)
  1. FOSAMAX [Suspect]
     Active Substance: ALENDRONATE SODIUM
     Indication: Osteoporosis
     Dosage: UNK
     Route: 048
  2. PROLIA [Suspect]
     Active Substance: DENOSUMAB
     Indication: Osteoporosis
     Dosage: SINGLE DOSE PREFILLED SYRINGE
  3. EVENITY [Suspect]
     Active Substance: ROMOSOZUMAB-AQQG
     Indication: Osteoporosis
     Dosage: SINGLE DOSE PREFILLED SYRINGE
  4. PREDNISONE [Suspect]
     Active Substance: PREDNISONE
     Indication: Lupus pleurisy
     Dosage: ALTERNATED BETWEEN 2.5MG AND 5 MG EVERY OTHER DAY
     Dates: start: 1999
  5. FORTEO [Suspect]
     Active Substance: TERIPARATIDE
     Indication: Osteoporosis
     Dosage: UNK
  6. BENLYSTA [Concomitant]
     Active Substance: BELIMUMAB
     Dosage: UNK

REACTIONS (6)
  - Cerebrovascular accident [Unknown]
  - Rheumatoid arthritis [Recovering/Resolving]
  - Systemic lupus erythematosus [Unknown]
  - Multiple fractures [Unknown]
  - Osteonecrosis [Unknown]
  - Cerebral haemorrhage [Unknown]
